FAERS Safety Report 15404525 (Version 2)
Quarter: 2019Q1

REPORT INFORMATION
  Report Type: Spontaneous
  Country: US (occurrence: US)
  Receive Date: 20180919
  Receipt Date: 20190110
  Transmission Date: 20190417
  Serious: No
  Sender: FDA-Public Use
  Company Number: US-SA-2018SA259902

PATIENT
  Age: 60 Year
  Sex: Male
  Weight: 79.3 kg

DRUGS (4)
  1. PAZEO [Concomitant]
     Active Substance: OLOPATADINE HYDROCHLORIDE
  2. TRIAMCINOLONE ACETONIDE. [Concomitant]
     Active Substance: TRIAMCINOLONE ACETONIDE
  3. DUPIXENT [Suspect]
     Active Substance: DUPILUMAB
     Indication: DERMATITIS ATOPIC
     Dosage: 300 MG, QOW
     Route: 051
     Dates: start: 20180714, end: 20181027
  4. NEOMYCIN / POLY B / DEXAMETHASONE [Concomitant]

REACTIONS (3)
  - Eye ulcer [Recovered/Resolved]
  - Erythema [Recovered/Resolved]
  - Skin ulcer [Unknown]

NARRATIVE: CASE EVENT DATE: 2018
